FAERS Safety Report 4840048-6 (Version None)
Quarter: 2005Q4

REPORT INFORMATION
  Report Type: 
  Country: None (occurrence: None)
  Receive Date: 20051125
  Receipt Date: 20051111
  Transmission Date: 20060501
  Serious: Yes (Other)
  Sender: FDA-Public Use
  Company Number: 219511

PATIENT
  Age: 62 Year
  Sex: Male

DRUGS (6)
  1. RITUXAN(RITUXIMAB) CONC FOR SOLUTION FOR INFUSION [Suspect]
     Indication: NON-HODGKIN'S LYMPHOMA
  2. CYCLOPHOSPHAMIDE [Concomitant]
  3. VINCRISTINE [Concomitant]
  4. ANTIBIOTICS NOS (ANTIBIOTICS NOS) [Concomitant]
  5. DOXORUBICIN HYDROCHLORIDE [Concomitant]
  6. PREDNISONE [Concomitant]

REACTIONS (7)
  - CYTOMEGALOVIRUS ENTEROCOLITIS [None]
  - DYSPNOEA [None]
  - HYPOVOLAEMIA [None]
  - NON-HODGKIN'S LYMPHOMA RECURRENT [None]
  - PLEURAL EFFUSION [None]
  - SEPTIC SHOCK [None]
  - THERAPY NON-RESPONDER [None]
